FAERS Safety Report 8530583-1 (Version None)
Quarter: 2012Q3

REPORT INFORMATION
  Report Type: 
  Country: None (occurrence: None)
  Receive Date: 20120723
  Receipt Date: 20120711
  Transmission Date: 20120928
  Serious: Yes (Other)
  Sender: FDA-Public Use
  Company Number: FR-009507513-1205FRA00093

PATIENT

DRUGS (11)
  1. NORVIR [Suspect]
     Indication: HIV INFECTION
     Dosage: 100 MG, QD
     Dates: start: 20120103, end: 20120423
  2. NEXIUM [Concomitant]
     Dosage: 20 MG, QD
  3. ISENTRESS [Suspect]
     Indication: HIV INFECTION
     Dosage: 600 MG, QD
     Route: 048
     Dates: start: 20120103, end: 20120423
  4. TELAPREVIR [Suspect]
     Indication: HEPATITIS C
     Dosage: 375 X 6
     Route: 048
     Dates: start: 20120212, end: 20120425
  5. REYATAZ [Suspect]
     Indication: HIV INFECTION
     Dosage: 300 MG, QD
     Dates: start: 20120103
  6. ENALAPRIL MALEATE AND HYDROCHLOROTHIAZIDE [Concomitant]
     Dosage: 1 UNK, UNK
  7. VITAMIN D [Concomitant]
  8. PEGASYS [Suspect]
     Indication: HEPATITIS C
     Dosage: 180 A?G, QW
     Route: 058
     Dates: start: 20120212, end: 20120425
  9. GABAPENTIN [Concomitant]
     Dosage: 100 MG, UNK
  10. COPEGUS [Suspect]
     Indication: HEPATITIS C
     Dosage: 1200 MG, QD
     Route: 048
     Dates: start: 20120212, end: 20120425
  11. LEVOTHYROXINE SODIUM [Concomitant]
     Dosage: 125 MICROGRAM, QD

REACTIONS (8)
  - NAUSEA [None]
  - ANAEMIA [None]
  - RASH GENERALISED [None]
  - DECREASED APPETITE [None]
  - VERTIGO [None]
  - PRURITUS [None]
  - DYSPNOEA EXERTIONAL [None]
  - FATIGUE [None]
